FAERS Safety Report 7604854-7 (Version None)
Quarter: 2011Q3

REPORT INFORMATION
  Report Type: 
  Country: None (occurrence: None)
  Receive Date: 20110712
  Receipt Date: 20110630
  Transmission Date: 20111222
  Serious: Yes (Other)
  Sender: FDA-Public Use
  Company Number: US-RB-025658-11

PATIENT
  Age: 40 Year
  Sex: Male

DRUGS (1)
  1. SUBOXONE [Suspect]
     Indication: PRODUCT USED FOR UNKNOWN INDICATION
     Dosage: DOSAGE UNKNOWN.
     Route: 065

REACTIONS (13)
  - DRUG WITHDRAWAL SYNDROME [None]
  - CONDITION AGGRAVATED [None]
  - TRANSIENT ISCHAEMIC ATTACK [None]
  - NERVOUSNESS [None]
  - INTENTIONAL OVERDOSE [None]
  - VOMITING [None]
  - DRUG DEPENDENCE [None]
  - SWELLING [None]
  - SLUGGISHNESS [None]
  - OEDEMA PERIPHERAL [None]
  - ROTATOR CUFF SYNDROME [None]
  - MALAISE [None]
  - MEMORY IMPAIRMENT [None]
